FAERS Safety Report 21298320 (Version 1)
Quarter: 2022Q3

REPORT INFORMATION
  Report Type: Spontaneous
  Country: US (occurrence: None)
  Receive Date: 20220902
  Receipt Date: 20220902
  Transmission Date: 20221027
  Serious: Yes (Hospitalization, Disabling)
  Sender: FDA-Public Use
  Company Number: None

PATIENT
  Age: 78 Year
  Sex: Male
  Weight: 73.9 kg

DRUGS (1)
  1. VARDENAFIL [Suspect]
     Active Substance: VARDENAFIL HYDROCHLORIDE
     Indication: Erectile dysfunction
     Dosage: FREQUENCY : AS NEEDED;?
     Route: 048
     Dates: start: 20210707, end: 20220610

REACTIONS (1)
  - Optic ischaemic neuropathy [None]

NARRATIVE: CASE EVENT DATE: 20220603
